FAERS Safety Report 23426441 (Version 1)
Quarter: 2024Q1

REPORT INFORMATION
  Report Type: Spontaneous
  Country: RO (occurrence: RO)
  Receive Date: 20240122
  Receipt Date: 20240122
  Transmission Date: 20240409
  Serious: Yes (Hospitalization, Other)
  Sender: FDA-Public Use
  Company Number: RO-ABBVIE-5591187

PATIENT
  Sex: Male
  Weight: 60 kg

DRUGS (1)
  1. SKYRIZI [Suspect]
     Active Substance: RISANKIZUMAB-RZAA
     Indication: Psoriasis
     Route: 058
     Dates: start: 20210809

REACTIONS (9)
  - Squamous cell carcinoma of the hypopharynx [Unknown]
  - Feeding disorder [Unknown]
  - Anaemia [Unknown]
  - Urinary tract infection [Unknown]
  - Hypopharyngeal neoplasm [Unknown]
  - Iron deficiency [Unknown]
  - Hypomagnesaemia [Unknown]
  - Unevaluable event [Unknown]
  - Hypercholesterolaemia [Unknown]
